FAERS Safety Report 5831996-9 (Version None)
Quarter: 2008Q3

REPORT INFORMATION
  Report Type: 
  Country: None (occurrence: None)
  Receive Date: 20080804
  Receipt Date: 20080801
  Transmission Date: 20090109
  Serious: Yes (Death)
  Sender: FDA-Public Use
  Company Number: JP-BRISTOL-MYERS SQUIBB COMPANY-14274534

PATIENT
  Age: 77 Year
  Sex: Female

DRUGS (14)
  1. AVAPRO [Suspect]
     Indication: HYPERTENSION
     Dosage: FROM 01JUL08-07JUL08 100MG/D (7 DAYS), 08JUL08-18JUL08 200MG/D.
     Route: 048
     Dates: start: 20080708, end: 20080718
  2. RISPERDAL [Concomitant]
     Indication: HALLUCINATION
     Route: 048
     Dates: end: 20080718
  3. RISPERDAL [Concomitant]
     Indication: DELUSION
     Route: 048
     Dates: end: 20080718
  4. CALBLOCK [Concomitant]
     Indication: HYPERTENSION
     Route: 048
     Dates: start: 20060715, end: 20080718
  5. PROTECADIN [Concomitant]
     Indication: GASTRITIS
     Route: 048
     Dates: end: 20080718
  6. OLMESARTAN MEDOXOMIL [Concomitant]
     Dates: start: 20060715
  7. ARICEPT [Concomitant]
     Indication: DEMENTIA
     Route: 048
     Dates: end: 20080718
  8. ASPIRIN [Concomitant]
     Indication: CEREBRAL INFARCTION
     Route: 048
     Dates: end: 20080718
  9. AKINETON [Concomitant]
     Indication: PROPHYLAXIS
     Route: 048
     Dates: end: 20080718
  10. RENAGEL [Concomitant]
     Indication: HYPERPHOSPHATAEMIA
     Route: 048
     Dates: end: 20080718
  11. ALOSENN [Concomitant]
     Indication: CONSTIPATION
     Route: 048
     Dates: end: 20080718
  12. SENNOSIDE [Concomitant]
     Indication: CONSTIPATION
     Route: 048
     Dates: end: 20080718
  13. EPOGIN [Concomitant]
     Indication: NEPHROGENIC ANAEMIA
     Dosage: EPOGIN INJ 1500,3000
     Route: 042
     Dates: end: 20080717
  14. CALCIUM CARBONATE [Concomitant]
     Indication: HYPERPHOSPHATAEMIA
     Route: 048
     Dates: end: 20080718

REACTIONS (1)
  - SUDDEN DEATH [None]
